FAERS Safety Report 17899731 (Version 1)
Quarter: 2020Q2

REPORT INFORMATION
  Report Type: Spontaneous
  Country: US (occurrence: US)
  Receive Date: 20200615
  Receipt Date: 20200615
  Transmission Date: 20200714
  Serious: Yes (Hospitalization)
  Sender: FDA-Public Use
  Company Number: None

PATIENT
  Age: 52 Year
  Sex: Female

DRUGS (1)
  1. ICATIBANT [Suspect]
     Active Substance: ICATIBANT ACETATE
     Indication: COMPLEMENT DEFICIENCY DISEASE
     Dosage: ?          OTHER FREQUENCY:AT ONSET;?
     Route: 058
     Dates: start: 20200109

REACTIONS (1)
  - Swollen tongue [None]

NARRATIVE: CASE EVENT DATE: 20200615
